FAERS Safety Report 6054969-2 (Version None)
Quarter: 2009Q1

REPORT INFORMATION
  Report Type: 
  Country: None (occurrence: None)
  Receive Date: 20090128
  Receipt Date: 20080104
  Transmission Date: 20090719
  Serious: Yes (Other)
  Sender: FDA-Public Use
  Company Number: US-RB-008902-08

PATIENT
  Sex: Female
  Weight: 72 kg

DRUGS (5)
  1. SUBUTEX [Suspect]
     Route: 060
     Dates: start: 20060101, end: 20060201
  2. SUBUTEX [Suspect]
     Route: 060
     Dates: start: 20070401, end: 20071217
  3. SUBOXONE [Suspect]
     Route: 060
     Dates: start: 20060101, end: 20060101
  4. SUBOXONE [Suspect]
     Route: 060
     Dates: start: 20060201, end: 20070401
  5. SUBOXONE [Suspect]
     Route: 060
     Dates: start: 20071218

REACTIONS (2)
  - ABORTION SPONTANEOUS [None]
  - DRUG EXPOSURE DURING PREGNANCY [None]
